FAERS Safety Report 8846591 (Version 1)
Quarter: 2012Q4

REPORT INFORMATION
  Report Type: 
  Country: GB (occurrence: GB)
  Receive Date: 20121017
  Receipt Date: 20121017
  Transmission Date: 20130627
  Serious: Yes (Hospitalization)
  Sender: FDA-Public Use
  Company Number: GB-TEVA-364448ISR

PATIENT
  Age: 74 Year
  Sex: Female

DRUGS (3)
  1. METHOTREXATE [Suspect]
     Indication: RHEUMATOID ARTHRITIS
     Route: 065
  2. PREDNISOLONE [Suspect]
     Indication: RHEUMATOID ARTHRITIS
     Dosage: 5mg daily, increased to 20mg during periods of active synovitis
     Route: 065
  3. ASPIRIN [Interacting]
     Dosage: daily dose of 75mg
     Route: 065

REACTIONS (2)
  - Gallbladder perforation [Recovered/Resolved]
  - Hypovolaemic shock [Recovered/Resolved]
